FAERS Safety Report 8391755-2 (Version None)
Quarter: 2012Q1

REPORT INFORMATION
  Report Type: 
  Country: None (occurrence: None)
  Receive Date: 20120323
  Receipt Date: 20110308
  Transmission Date: 20120608
  Serious: Yes (Hospitalization)
  Sender: FDA-Public Use
  Company Number: 163-21880-11031123

PATIENT
  Age: 57 Year
  Sex: Female
  Weight: 140.6151 kg

DRUGS (6)
  1. REVLIMID [Suspect]
     Indication: MULTIPLE MYELOMA
     Dosage: 25 MG, DAILY, PO
     Route: 048
     Dates: start: 20100920, end: 20110123
  2. DECADRON [Concomitant]
  3. COUMADIN [Concomitant]
  4. METAZOLONE (CEFMETAZOLE SODIUM) [Concomitant]
  5. STEROIDS (STEROID ANTIBACTERIALS) (INJECTION) [Concomitant]
  6. AMOXICILLIN [Concomitant]

REACTIONS (2)
  - PULMONARY EMBOLISM [None]
  - THROMBOSIS [None]
